FAERS Safety Report 4695287-4 (Version None)
Quarter: 2005Q2

REPORT INFORMATION
  Report Type: 
  Country: None (occurrence: None)
  Receive Date: 20050608
  Receipt Date: 20041209
  Transmission Date: 20051028
  Serious: Yes (Other)
  Sender: FDA-Public Use
  Company Number: 388912

PATIENT

DRUGS (3)
  1. ACCUTANE [Suspect]
     Dates: start: 20040225, end: 20040802
  2. ISOTRETINOIN [Suspect]
     Dates: start: 20040225, end: 20040802
  3. ORAL CONTRACEPTIVE PILL [Concomitant]

REACTIONS (1)
  - ABORTION INDUCED [None]
